FAERS Safety Report 18212180 (Version 4)
Quarter: 2020Q4

REPORT INFORMATION
  Report Type: Spontaneous
  Country: ES (occurrence: ES)
  Receive Date: 20200831
  Receipt Date: 20201016
  Transmission Date: 20210113
  Serious: Yes (Life-Threatening, Other)
  Sender: FDA-Public Use
  Company Number: ES-PFIZER INC-2020332962

PATIENT
  Age: 13 Year
  Sex: Male

DRUGS (7)
  1. ADRIAMYCIN [Concomitant]
     Active Substance: DOXORUBICIN HYDROCHLORIDE
     Indication: OSTEOSARCOMA
     Dosage: UNK, CYCLIC (TWO MORE CYCLES)
  2. TRIMETHOPRIM SULFAMETHOXAZOLE [Concomitant]
     Active Substance: SULFAMETHOXAZOLE\TRIMETHOPRIM
     Dosage: UNK
  3. CISPLATIN. [Concomitant]
     Active Substance: CISPLATIN
     Dosage: UNK, CYCLIC (TWO MORE CYCLES)
  4. CYCLOPHOSPHAMIDE. [Concomitant]
     Active Substance: CYCLOPHOSPHAMIDE
     Indication: OSTEOSARCOMA
     Dosage: UNK, CYCLIC (TWO MORE CYCLES)
  5. METHOTREXATE SODIUM. [Suspect]
     Active Substance: METHOTREXATE SODIUM
     Indication: OSTEOSARCOMA
     Dosage: UNK, CYCLIC (TWO MORE CYCLES, HIGH INITIAL DOSE)
  6. ACTINOMYCIN D [Concomitant]
     Active Substance: DACTINOMYCIN
     Indication: OSTEOSARCOMA
     Dosage: UNK, CYCLIC (TWO MORE CYCLES)
  7. VINCRISTINE [Concomitant]
     Active Substance: VINCRISTINE
     Indication: OSTEOSARCOMA
     Dosage: UNK, CYCLIC (TWO MORE CYCLES)

REACTIONS (2)
  - Epidermal necrosis [Recovered/Resolved]
  - Bone marrow failure [Recovered/Resolved]
